FAERS Safety Report 11656721 (Version 3)
Quarter: 2016Q3

REPORT INFORMATION
  Report Type: Report from Study
  Country: AU (occurrence: AU)
  Receive Date: 20151023
  Receipt Date: 20160927
  Transmission Date: 20161109
  Serious: Yes (Other)
  Sender: FDA-Public Use
  Company Number: AU-REGENERON PHARMACEUTICALS, INC.-2015-10597

PATIENT

DRUGS (3)
  1. EYLEA [Suspect]
     Active Substance: AFLIBERCEPT
     Dosage: 2 MG, Q6WK
     Route: 031
  2. EYLEA [Suspect]
     Active Substance: AFLIBERCEPT
     Indication: AGE-RELATED MACULAR DEGENERATION
     Dosage: 2 MG, 3 MONTHLY
     Route: 031
  3. EYLEA [Suspect]
     Active Substance: AFLIBERCEPT
     Indication: NEOVASCULAR AGE-RELATED MACULAR DEGENERATION
     Dosage: 2 MG, LEFT EYE INJECTIONS IN 8 WEEK INTERVAL
     Route: 031
     Dates: start: 20140712

REACTIONS (5)
  - Eye haemorrhage [Unknown]
  - Systemic lupus erythematosus [Unknown]
  - Depression [Recovered/Resolved]
  - Age-related macular degeneration [Unknown]
  - Vision blurred [Unknown]
